FAERS Safety Report 9420127 (Version 1)
Quarter: 2013Q3

REPORT INFORMATION
  Report Type: Spontaneous
  Country: US (occurrence: None)
  Receive Date: 20130724
  Receipt Date: 20130724
  Transmission Date: 20140515
  Serious: No
  Sender: FDA-Public Use
  Company Number: None

PATIENT
  Sex: Male

DRUGS (2)
  1. ENBREL 50MG/ML IMMNNEX [Suspect]
     Indication: LYMPHATIC DISORDER
     Dosage: INJECT 50MG SUBCUTANEOUSLY ONCE A WEEK
     Route: 058
  2. ENBREL 50MG/ML IMMNNEX [Suspect]
     Indication: BLOOD DISORDER
     Dosage: INJECT 50MG SUBCUTANEOUSLY ONCE A WEEK
     Route: 058

REACTIONS (1)
  - Anaemia [None]
